FAERS Safety Report 13249181 (Version 1)
Quarter: 2017Q1

REPORT INFORMATION
  Report Type: Spontaneous
  Country: US (occurrence: US)
  Receive Date: 20170218
  Receipt Date: 20170218
  Transmission Date: 20170428
  Serious: No
  Sender: FDA-Public Use
  Company Number: US-ALLERGAN-1654337US

PATIENT
  Sex: Male

DRUGS (2)
  1. REFRESH CLASSIC [Concomitant]
     Active Substance: POLYVINYL ALCOHOL\POVIDONE
     Indication: DRY EYE
     Dosage: EVERY 15 MINUTES
     Route: 047
  2. RESTASIS [Suspect]
     Active Substance: CYCLOSPORINE
     Indication: DRY EYE
     Dosage: 2 GTT, BID
     Route: 047

REACTIONS (9)
  - Dacryostenosis acquired [Not Recovered/Not Resolved]
  - Headache [Not Recovered/Not Resolved]
  - Vision blurred [Not Recovered/Not Resolved]
  - Ocular hyperaemia [Not Recovered/Not Resolved]
  - Drug ineffective [Unknown]
  - Dry eye [Not Recovered/Not Resolved]
  - Incorrect product storage [Unknown]
  - Diplopia [Not Recovered/Not Resolved]
  - Asthenopia [Not Recovered/Not Resolved]
